FAERS Safety Report 5602989-1 (Version None)
Quarter: 2008Q1

REPORT INFORMATION
  Report Type: 
  Country: None (occurrence: None)
  Receive Date: 20080125
  Receipt Date: 20080114
  Transmission Date: 20080703
  Serious: Yes (Life-Threatening, Hospitalization)
  Sender: FDA-Public Use
  Company Number: BE-PFIZER INC-2006088384

PATIENT
  Sex: Male

DRUGS (14)
  1. SUTENT [Suspect]
     Indication: METASTATIC RENAL CELL CARCINOMA
     Route: 048
     Dates: start: 20060524, end: 20060830
  2. ALLOPURINOL [Concomitant]
     Route: 048
  3. PARACETAMOL [Concomitant]
     Route: 048
  4. PRIMPERAN INJ [Concomitant]
     Route: 048
  5. ESCITALOPRAM [Concomitant]
     Route: 048
  6. LAMICTAL [Concomitant]
     Route: 048
  7. MEDROL [Concomitant]
     Route: 048
  8. CAPTAGON [Concomitant]
     Route: 048
  9. AMLOR [Concomitant]
     Route: 048
  10. OMNIBIONTA [Concomitant]
     Route: 048
  11. CALCIUM GLUCONATE [Concomitant]
     Route: 048
  12. VITAMIN D [Concomitant]
     Route: 048
  13. MORPHINE [Concomitant]
     Route: 048
  14. MOVICOL [Concomitant]
     Route: 048

REACTIONS (5)
  - ANXIETY [None]
  - MUSCULOSKELETAL PAIN [None]
  - PAIN IN JAW [None]
  - THROMBOCYTOPENIA [None]
  - WOUND COMPLICATION [None]
